FAERS Safety Report 6172601-4 (Version None)
Quarter: 2009Q2

REPORT INFORMATION
  Report Type: 
  Country: None (occurrence: None)
  Receive Date: 20090428
  Receipt Date: 20090415
  Transmission Date: 20091009
  Serious: Yes (Other)
  Sender: FDA-Public Use
  Company Number: 231905K09USA

PATIENT
  Age: 55 Year
  Sex: Female

DRUGS (7)
  1. REBIF [Suspect]
     Indication: MULTIPLE SCLEROSIS
     Dosage: 44 MCG, 3 IN 1 WEEKS, SUBCUTANEOUS
     Route: 058
     Dates: start: 20081012
  2. NEURONTIN [Concomitant]
  3. PREDNISONE (PREDNISONE /00044701/). [Concomitant]
  4. PLAQUENIL [Concomitant]
  5. DARVOCET [Concomitant]
  6. BACLOFEN [Concomitant]
  7. VOLTAREN (DICLOFENAC /00372301/) [Concomitant]

REACTIONS (6)
  - GRAND MAL CONVULSION [None]
  - HAEMATOCRIT DECREASED [None]
  - HAEMOGLOBIN DECREASED [None]
  - HAEMORRHAGE [None]
  - RED BLOOD CELL COUNT DECREASED [None]
  - VENOUS OCCLUSION [None]
